FAERS Safety Report 7535211-X (Version None)
Quarter: 2011Q2

REPORT INFORMATION
  Report Type: 
  Country: None (occurrence: None)
  Receive Date: 20110609
  Receipt Date: 20071120
  Transmission Date: 20111010
  Serious: Yes (Death, Other)
  Sender: FDA-Public Use
  Company Number: PHFR2007GB01589

PATIENT
  Sex: Female

DRUGS (2)
  1. CLOZAPINE [Suspect]
     Route: 048
     Dates: start: 20071115
  2. CLOZAPINE [Suspect]
     Indication: SCHIZOPHRENIA
     Dosage: 200 MG, QD
     Route: 048
     Dates: start: 19970805, end: 20071111

REACTIONS (3)
  - MYOCARDIAL ISCHAEMIA [None]
  - CARDIAC DISORDER [None]
  - LOWER RESPIRATORY TRACT INFECTION [None]
